FAERS Safety Report 10729347 (Version 1)
Quarter: 2015Q1

REPORT INFORMATION
  Report Type: Spontaneous
  Country: US (occurrence: None)
  Receive Date: 20150121
  Receipt Date: 20150121
  Transmission Date: 20150721
  Serious: Yes (Death, Other)
  Sender: FDA-Public Use
  Company Number: None

PATIENT
  Age: 85 Year
  Sex: Female
  Weight: 74.84 kg

DRUGS (1)
  1. ERTAPENEM [Suspect]
     Active Substance: ERTAPENEM
     Indication: URINARY TRACT INFECTION
     Dosage: INTO A VEIN
     Dates: start: 20140724, end: 20140727

REACTIONS (21)
  - Abasia [None]
  - Pain in extremity [None]
  - Aggression [None]
  - Dysstasia [None]
  - International normalised ratio increased [None]
  - Asthenia [None]
  - Blood potassium abnormal [None]
  - Muscular weakness [None]
  - General physical health deterioration [None]
  - Cardiac failure congestive [None]
  - Adverse drug reaction [None]
  - Vein disorder [None]
  - Movement disorder [None]
  - Hepatic failure [None]
  - Condition aggravated [None]
  - Head injury [None]
  - Neck pain [None]
  - Peripheral swelling [None]
  - Vascular dementia [None]
  - Confusional state [None]
  - Renal failure [None]

NARRATIVE: CASE EVENT DATE: 20140724
